FAERS Safety Report 23959953 (Version 2)
Quarter: 2024Q3

REPORT INFORMATION
  Report Type: Spontaneous
  Country: US (occurrence: US)
  Receive Date: 20240611
  Receipt Date: 20240703
  Transmission Date: 20241016
  Serious: Yes (Other)
  Sender: TEVA
  Company Number: US-TEVA-VS-3207277

PATIENT
  Age: 58 Year
  Sex: Male

DRUGS (10)
  1. GABAPENTIN [Suspect]
     Active Substance: GABAPENTIN
     Indication: Restless legs syndrome
     Route: 065
  2. PREGABALIN [Suspect]
     Active Substance: PREGABALIN
     Indication: Restless legs syndrome
     Route: 065
  3. ROTIGOTINE [Concomitant]
     Active Substance: ROTIGOTINE
     Indication: Restless legs syndrome
     Route: 065
  4. ROTIGOTINE [Concomitant]
     Active Substance: ROTIGOTINE
     Indication: Restless legs syndrome
     Route: 065
  5. ENZALUTAMIDE [Suspect]
     Active Substance: ENZALUTAMIDE
     Indication: Prostate cancer
     Route: 065
  6. HYDROCODONE [Suspect]
     Active Substance: HYDROCODONE
     Indication: Restless legs syndrome
     Route: 065
  7. TRAMADOL [Suspect]
     Active Substance: TRAMADOL\TRAMADOL HYDROCHLORIDE
     Indication: Restless legs syndrome
     Route: 065
  8. APALUTAMIDE [Suspect]
     Active Substance: APALUTAMIDE
     Indication: Prostate cancer
     Route: 065
  9. METHADONE [Concomitant]
     Active Substance: METHADONE HYDROCHLORIDE
     Indication: Restless legs syndrome
  10. METHADONE [Concomitant]
     Active Substance: METHADONE HYDROCHLORIDE
     Indication: Restless legs syndrome

REACTIONS (3)
  - Drug ineffective [Unknown]
  - Insomnia [Recovered/Resolved]
  - Restless legs syndrome [Recovered/Resolved]
